FAERS Safety Report 14977266 (Version 1)
Quarter: 2018Q2

REPORT INFORMATION
  Report Type: Report from Study
  Country: JP (occurrence: JP)
  Receive Date: 20180606
  Receipt Date: 20180606
  Transmission Date: 20180711
  Serious: Yes (Death)
  Sender: FDA-Public Use
  Company Number: JP-AMGEN-JPNCT2018076318

PATIENT
  Age: 83 Year
  Sex: Male
  Weight: 35 kg

DRUGS (9)
  1. MYSLEE [Concomitant]
     Active Substance: ZOLPIDEM TARTRATE
     Indication: INSOMNIA
     Dosage: UNK
     Route: 048
  2. CRAVIT [Concomitant]
     Active Substance: LEVOFLOXACIN
     Indication: MYELODYSPLASTIC SYNDROME
     Dosage: 500 MG, UNK
     Route: 048
     Dates: start: 20171013
  3. NEXIUM [Concomitant]
     Active Substance: ESOMEPRAZOLE MAGNESIUM
     Indication: GASTROOESOPHAGEAL REFLUX DISEASE
     Dosage: UNK
     Route: 048
  4. ROCEPHIN [Concomitant]
     Active Substance: CEFTRIAXONE SODIUM
     Indication: MYELODYSPLASTIC SYNDROME
     Dosage: 2 G, UNK
     Route: 042
     Dates: start: 20170906
  5. DECADRON [Concomitant]
     Active Substance: DEXAMETHASONE
     Indication: MYELODYSPLASTIC SYNDROME
     Dosage: 1 MG, UNK
     Route: 048
     Dates: start: 20170911
  6. DARBEPOETIN ALFA [Suspect]
     Active Substance: DARBEPOETIN ALFA
     Indication: MYELODYSPLASTIC SYNDROME
     Dosage: 120 MUG, QWK
     Route: 058
     Dates: start: 20170926
  7. EXCELASE [Concomitant]
     Active Substance: PANCRELIPASE
     Dosage: UNK
     Route: 048
  8. MOSAPRIDE CITRATE [Concomitant]
     Active Substance: MOSAPRIDE CITRATE
     Dosage: 5 MG, UNK
     Route: 048
  9. MEROPEN [Concomitant]
     Active Substance: MEROPENEM
     Indication: MYELODYSPLASTIC SYNDROME
     Dosage: 1.5 G, UNK
     Route: 041
     Dates: start: 20171020

REACTIONS (1)
  - Death [Fatal]

NARRATIVE: CASE EVENT DATE: 20171029
